FAERS Safety Report 7107456-4 (Version None)
Quarter: 2010Q4

REPORT INFORMATION
  Report Type: 
  Country: None (occurrence: None)
  Receive Date: 20101018
  Receipt Date: 20091023
  Transmission Date: 20110411
  Serious: Yes (Hospitalization, Other)
  Sender: FDA-Public Use
  Company Number: US-WYE-H07835709

PATIENT
  Age: 37 Year
  Sex: Female

DRUGS (1)
  1. PREMARIN [Suspect]

REACTIONS (1)
  - PULMONARY EMBOLISM [None]
